FAERS Safety Report 6161160-8 (Version None)
Quarter: 2009Q2

REPORT INFORMATION
  Report Type: 
  Country: None (occurrence: None)
  Receive Date: 20090416
  Receipt Date: 20090409
  Transmission Date: 20091009
  Serious: Yes (Other)
  Sender: FDA-Public Use
  Company Number: CHPA2009US09086

PATIENT

DRUGS (5)
  1. THERAFLU NIGHTTIME SEVERE COLD WARNING SYRUP (NCH) (PARACETAMOL, DIPHE [Suspect]
     Indication: COUGH
     Dosage: 6 TSP, ONCE/SINGLE, ORAL
     Route: 048
     Dates: start: 20090304, end: 20090304
  2. THERAFLU NIGHTTIME SEVERE COLD WARNING SYRUP (NCH) (PARACETAMOL, DIPHE [Suspect]
     Indication: NASOPHARYNGITIS
     Dosage: 6 TSP, ONCE/SINGLE, ORAL
     Route: 048
     Dates: start: 20090304, end: 20090304
  3. THERAFUL DAYTIME SEVERE COLD WARNING SYRUP (NCH) (PARACETAMOL, DEXTROM [Suspect]
     Indication: COUGH
     Dosage: 6 TSP, ONCE/SINGLE, ORAL
     Route: 048
     Dates: start: 20090306, end: 20090306
  4. THERAFUL DAYTIME SEVERE COLD WARNING SYRUP (NCH) (PARACETAMOL, DEXTROM [Suspect]
     Indication: NASOPHARYNGITIS
     Dosage: 6 TSP, ONCE/SINGLE, ORAL
     Route: 048
     Dates: start: 20090306, end: 20090306
  5. LEXAPRO [Suspect]
     Indication: ANXIETY
     Dosage: ORAL

REACTIONS (3)
  - BRADYCARDIA [None]
  - DIZZINESS [None]
  - DYSPNOEA [None]
